FAERS Safety Report 16481293 (Version 2)
Quarter: 2019Q4

REPORT INFORMATION
  Report Type: Spontaneous
  Country: FR (occurrence: FR)
  Receive Date: 20190626
  Receipt Date: 20191203
  Transmission Date: 20200122
  Serious: Yes (Hospitalization, Other)
  Sender: FDA-Public Use
  Company Number: PHHY2019FR143402

PATIENT
  Sex: Male
  Weight: .87 kg

DRUGS (5)
  1. CATAPRESSAN [Concomitant]
     Active Substance: CLONIDINE
     Indication: FOETAL EXPOSURE DURING PREGNANCY
     Dosage: UNK
     Route: 065
  2. EPITOMAX [Suspect]
     Active Substance: TOPIRAMATE
     Indication: FOETAL EXPOSURE DURING PREGNANCY
     Dosage: MOTHER DOSE: 200 MG, QD (100 MG, 2X/DAY (BID))
     Route: 064
  3. KEPPRA [Suspect]
     Active Substance: LEVETIRACETAM
     Indication: FOETAL EXPOSURE DURING PREGNANCY
     Dosage: MOTHER DOSE: 2500 MG, QD (500 MG, 5X/DAY)
     Route: 064
  4. TEGRETOL [Suspect]
     Active Substance: CARBAMAZEPINE
     Indication: FOETAL EXPOSURE DURING PREGNANCY
     Dosage: MOTHER DOES: 800 MG, QD (400 MG, 2X/DAY (BID))
     Route: 064
  5. MOGADON [Suspect]
     Active Substance: NITRAZEPAM
     Indication: FOETAL EXPOSURE DURING PREGNANCY
     Dosage: MOTHER DOSE: 25 MG, UNK
     Route: 064

REACTIONS (10)
  - Tachycardia foetal [Unknown]
  - Maternal exposure during pregnancy [Unknown]
  - Premature baby [Unknown]
  - Pneumatosis [Recovering/Resolving]
  - Metabolic acidosis [Unknown]
  - Foetal heart rate deceleration abnormality [Unknown]
  - Low birth weight baby [Unknown]
  - Drug withdrawal syndrome neonatal [Recovered/Resolved]
  - Hypotonia [Recovered/Resolved]
  - Blood pressure increased [Unknown]

NARRATIVE: CASE EVENT DATE: 201203
